FAERS Safety Report 6151293-4 (Version None)
Quarter: 2009Q2

REPORT INFORMATION
  Report Type: 
  Country: None (occurrence: None)
  Receive Date: 20090408
  Receipt Date: 20090330
  Transmission Date: 20091009
  Serious: Yes (Disabling)
  Sender: FDA-Public Use
  Company Number: 2008SP013164

PATIENT
  Age: 63 Year
  Sex: Male
  Weight: 73 kg

DRUGS (2)
  1. REBETOL [Suspect]
     Indication: HEPATITIS C
     Dosage: 1000
     Dates: start: 20051020, end: 20061130
  2. PEGASYS [Suspect]
     Indication: HEPATITIS C
     Dosage: 180
     Dates: start: 20051020, end: 20061130

REACTIONS (7)
  - ASTHENIA [None]
  - DRY SKIN [None]
  - HAEMOGLOBIN DECREASED [None]
  - PLATELET COUNT DECREASED [None]
  - PRURITUS [None]
  - SKIN EXFOLIATION [None]
  - WEIGHT DECREASED [None]
